FAERS Safety Report 6524953-0 (Version None)
Quarter: 2009Q4

REPORT INFORMATION
  Report Type: 
  Country: None (occurrence: None)
  Receive Date: 20091224
  Receipt Date: 20091215
  Transmission Date: 20100525
  Serious: Yes (Life-Threatening, Hospitalization)
  Sender: FDA-Public Use
  Company Number: 1000010893

PATIENT
  Age: 76 Year
  Sex: Male

DRUGS (9)
  1. NEBIVOLOL HCL [Suspect]
     Dosage: 5 MG (5 MG, 1 IN 1 D), ORAL
     Route: 048
     Dates: start: 20090516, end: 20090516
  2. CORDARONE [Suspect]
     Dosage: ORAL
     Route: 048
     Dates: start: 20090516
  3. HEMIGOXINE NATIVELLE [Suspect]
     Dosage: ORAL
     Route: 048
     Dates: start: 20090516
  4. FUROSEMIDE [Concomitant]
  5. PREVISCAN [Concomitant]
  6. EUPANTOL [Concomitant]
  7. ZOPICLONE [Concomitant]
  8. PRAVASTATIN [Concomitant]
  9. LISINOPRIL [Concomitant]

REACTIONS (8)
  - AORTIC STENOSIS [None]
  - ATRIOVENTRICULAR BLOCK FIRST DEGREE [None]
  - BUNDLE BRANCH BLOCK RIGHT [None]
  - CARDIAC ANEURYSM [None]
  - EJECTION FRACTION DECREASED [None]
  - SKIN INJURY [None]
  - SYNCOPE [None]
  - VENTRICULAR HYPOKINESIA [None]
